FAERS Safety Report 12943044 (Version 1)
Quarter: 2016Q4

REPORT INFORMATION
  Report Type: Report from Study
  Country: GR (occurrence: GR)
  Receive Date: 20161115
  Receipt Date: 20161115
  Transmission Date: 20170207
  Serious: Yes (Other)
  Sender: FDA-Public Use
  Company Number: PHHY2016GR155565

PATIENT
  Age: 43 Year
  Sex: Female

DRUGS (1)
  1. ZYKADIA [Suspect]
     Active Substance: CERITINIB
     Indication: NON-SMALL CELL LUNG CANCER
     Dosage: 600 MG, UNK
     Route: 065

REACTIONS (3)
  - Activities of daily living impaired [Unknown]
  - Nausea [Unknown]
  - Fatigue [Unknown]
